FAERS Safety Report 23343920 (Version 1)
Quarter: 2023Q4

REPORT INFORMATION
  Report Type: Spontaneous
  Country: US (occurrence: US)
  Receive Date: 20231227
  Receipt Date: 20231227
  Transmission Date: 20240109
  Serious: Yes (Other)
  Sender: FDA-Public Use
  Company Number: US-SEAGEN-2023SGN13596

PATIENT

DRUGS (1)
  1. ADCETRIS [Suspect]
     Active Substance: BRENTUXIMAB VEDOTIN
     Indication: Hodgkin^s disease
     Dosage: UNK
     Route: 065

REACTIONS (6)
  - Cytopenia [Unknown]
  - Neuropathy peripheral [Unknown]
  - Pneumonitis [Unknown]
  - Product use issue [Unknown]
  - Infusion related reaction [Unknown]
  - Infection [Unknown]
